FAERS Safety Report 25913461 (Version 2)
Quarter: 2025Q4

REPORT INFORMATION
  Report Type: Spontaneous
  Country: CN (occurrence: CN)
  Receive Date: 20251013
  Receipt Date: 20251015
  Transmission Date: 20260117
  Serious: Yes (Life-Threatening, Other)
  Sender: PFIZER
  Company Number: CN-MLMSERVICE-20250929-PI660303-00077-1

PATIENT
  Age: 45 Year
  Sex: Female

DRUGS (24)
  1. PACLITAXEL [Suspect]
     Active Substance: PACLITAXEL
     Indication: HER2 positive breast cancer
     Dosage: CYCLIC, (6 CYCLES, ALBUMIN BOUND)
     Dates: start: 202112
  2. PACLITAXEL [Suspect]
     Active Substance: PACLITAXEL
     Indication: Hormone receptor positive breast cancer
     Dosage: CYCLIC (8 CYCLES, LIPOSOMAL)
  3. PACLITAXEL [Suspect]
     Active Substance: PACLITAXEL
     Indication: Breast cancer metastatic
  4. PACLITAXEL [Suspect]
     Active Substance: PACLITAXEL
     Indication: Metastases to lymph nodes
  5. EXEMESTANE [Suspect]
     Active Substance: EXEMESTANE
     Indication: Metastases to lymph nodes
     Dosage: CYCLIC (6 CYCLES)
  6. EXEMESTANE [Suspect]
     Active Substance: EXEMESTANE
     Indication: HER2 positive breast cancer
  7. EXEMESTANE [Suspect]
     Active Substance: EXEMESTANE
     Indication: Hormone receptor positive breast cancer
  8. EXEMESTANE [Suspect]
     Active Substance: EXEMESTANE
     Indication: Breast cancer metastatic
  9. CAPECITABINE [Suspect]
     Active Substance: CAPECITABINE
     Indication: Hormone receptor positive breast cancer
     Dosage: CYCLIC, (MAINTENANCE THERAPY)
     Dates: end: 202404
  10. CAPECITABINE [Suspect]
     Active Substance: CAPECITABINE
     Indication: Metastases to lymph nodes
  11. CAPECITABINE [Suspect]
     Active Substance: CAPECITABINE
     Indication: HER2 positive breast cancer
  12. CAPECITABINE [Suspect]
     Active Substance: CAPECITABINE
     Indication: Breast cancer metastatic
  13. CARBOPLATIN [Suspect]
     Active Substance: CARBOPLATIN
     Indication: Hormone receptor positive breast cancer
     Dosage: CYCLIC (6 CYCLE)
     Dates: start: 202112
  14. CARBOPLATIN [Suspect]
     Active Substance: CARBOPLATIN
     Indication: Metastases to lymph nodes
  15. CARBOPLATIN [Suspect]
     Active Substance: CARBOPLATIN
     Indication: HER2 positive breast cancer
  16. CARBOPLATIN [Suspect]
     Active Substance: CARBOPLATIN
     Indication: Breast cancer metastatic
  17. FULVESTRANT [Suspect]
     Active Substance: FULVESTRANT
     Indication: Hormone receptor positive breast cancer
     Dosage: CYCLIC (6 CYCLES)
  18. FULVESTRANT [Suspect]
     Active Substance: FULVESTRANT
     Indication: Metastases to lymph nodes
  19. FULVESTRANT [Suspect]
     Active Substance: FULVESTRANT
     Indication: HER2 positive breast cancer
  20. FULVESTRANT [Suspect]
     Active Substance: FULVESTRANT
     Indication: Breast cancer metastatic
  21. GOSERELIN [Suspect]
     Active Substance: GOSERELIN
     Indication: Hormone receptor positive breast cancer
     Dosage: CYCLIC (6 CYCLES)
  22. GOSERELIN [Suspect]
     Active Substance: GOSERELIN
     Indication: Metastases to lymph nodes
  23. GOSERELIN [Suspect]
     Active Substance: GOSERELIN
     Indication: HER2 positive breast cancer
  24. GOSERELIN [Suspect]
     Active Substance: GOSERELIN
     Indication: Breast cancer metastatic

REACTIONS (1)
  - Myelosuppression [Unknown]
